FAERS Safety Report 5183843-9 (Version None)
Quarter: 2006Q4

REPORT INFORMATION
  Report Type: 
  Country: None (occurrence: None)
  Receive Date: 20061220
  Receipt Date: 20061211
  Transmission Date: 20070319
  Serious: Yes (Life-Threatening, Hospitalization)
  Sender: FDA-Public Use
  Company Number: KR-GLAXOSMITHKLINE-B0450587A

PATIENT
  Age: 13 Year
  Sex: Female
  Weight: 38.5 kg

DRUGS (1)
  1. LAMICTAL [Suspect]
     Route: 048
     Dates: start: 20061026, end: 20061127

REACTIONS (14)
  - ASCITES [None]
  - FACE OEDEMA [None]
  - HEPATITIS ACUTE [None]
  - HYPERBILIRUBINAEMIA [None]
  - HYPERSENSITIVITY [None]
  - JAUNDICE [None]
  - LETHARGY [None]
  - PAIN [None]
  - PRURITUS [None]
  - PYREXIA [None]
  - RASH MACULO-PAPULAR [None]
  - SPLENOMEGALY [None]
  - STEVENS-JOHNSON SYNDROME [None]
  - TRANSAMINASES INCREASED [None]
